FAERS Safety Report 8086319-4 (Version None)
Quarter: 2012Q1

REPORT INFORMATION
  Report Type: 
  Country: None (occurrence: None)
  Receive Date: 20120128
  Receipt Date: 20110502
  Transmission Date: 20120608
  Serious: No
  Sender: FDA-Public Use
  Company Number: US-ABBOTT-11P-163-0722625-00

PATIENT
  Age: 64 Year
  Sex: Male

DRUGS (3)
  1. HUMIRA [Suspect]
     Indication: PSORIASIS
     Dates: start: 20101201
  2. UNKNOWN ACID REFLUX MEDICATION [Concomitant]
     Indication: PRODUCT USED FOR UNKNOWN INDICATION
  3. UNKNOWN BLOOD PRESSURE MEDICATION [Concomitant]
     Indication: PRODUCT USED FOR UNKNOWN INDICATION

REACTIONS (5)
  - PSORIASIS [None]
  - SKIN TURGOR DECREASED [None]
  - DRUG INEFFECTIVE [None]
  - SKIN HAEMORRHAGE [None]
  - PRURITUS [None]
